FAERS Safety Report 10178750 (Version 1)
Quarter: 2014Q2

REPORT INFORMATION
  Report Type: Spontaneous
  Country: US (occurrence: None)
  Receive Date: 20140416
  Receipt Date: 20140416
  Transmission Date: 20141212
  Serious: Yes (Other)
  Sender: FDA-Public Use
  Company Number: 163-POMAL-13110154

PATIENT
  Age: 74 Year
  Sex: Male
  Weight: 85.3 kg

DRUGS (2)
  1. POMALYST (POMALIDOMIDE) (4 MILLIGRAM, CAPSULES) [Suspect]
     Indication: PLASMA CELL MYELOMA
     Dosage: 4 MG, 21 IN 28 D, PO?
     Route: 048
     Dates: start: 20131029
  2. ASPIRIN (ACETYLSALICYLIC ACID) [Concomitant]

REACTIONS (4)
  - Blood pressure increased [None]
  - Blood glucose increased [None]
  - Fatigue [None]
  - Asthenia [None]
